FAERS Safety Report 24078389 (Version 1)
Quarter: 2024Q3

REPORT INFORMATION
  Report Type: Report from Study
  Country: EG (occurrence: EG)
  Receive Date: 20240711
  Receipt Date: 20240711
  Transmission Date: 20241017
  Serious: Yes (Disabling)
  Sender: SANDOZ
  Company Number: EG-SANDOZ-SDZ2024EG037479

PATIENT
  Age: 8 Year
  Sex: Male
  Weight: 31 kg

DRUGS (5)
  1. OMNITROPE [Suspect]
     Active Substance: SOMATROPIN
     Dosage: 0.7 MG, DAILY
     Route: 058
     Dates: start: 202303
  2. OMNITROPE [Suspect]
     Active Substance: SOMATROPIN
     Indication: Growth hormone deficiency
     Dosage: 10 IU, QD
     Route: 058
  3. OMNITROPE [Suspect]
     Active Substance: SOMATROPIN
     Dosage: WAS 10ML THEN BECAME 12ML BY THE INSULIN SYRINGE
     Route: 058
     Dates: start: 202303
  4. PLAVIX [Concomitant]
     Active Substance: CLOPIDOGREL BISULFATE
     Indication: Precocious puberty
     Dosage: 1 AMPOULE EVERY 3 MONTHS
     Route: 065
     Dates: start: 202303
  5. GOSERELIN [Concomitant]
     Active Substance: GOSERELIN
     Indication: Product used for unknown indication
     Dosage: UNK (ONCE EVERY 3 MONTH- 10.8 PREFILLED SYRINGE)
     Route: 058
     Dates: start: 202303

REACTIONS (4)
  - Dizziness [Not Recovered/Not Resolved]
  - Mass [Not Recovered/Not Resolved]
  - Peripheral swelling [Not Recovered/Not Resolved]
  - Drug administered in wrong device [Unknown]

NARRATIVE: CASE EVENT DATE: 20230301
